FAERS Safety Report 5988674-5 (Version None)
Quarter: 2008Q4

REPORT INFORMATION
  Report Type: 
  Country: None (occurrence: None)
  Receive Date: 20081210
  Receipt Date: 20081201
  Transmission Date: 20090506
  Serious: Yes (Other)
  Sender: FDA-Public Use
  Company Number: PHHY2008DE30490

PATIENT
  Weight: 76 kg

DRUGS (3)
  1. PROVAS [Suspect]
     Indication: HYPERTENSION
     Dosage: 80 MG, UNK
     Dates: end: 20081014
  2. AQUAPHOR [Concomitant]
     Dosage: 1 DF, Q72H
  3. AQUAPHOR [Concomitant]
     Dosage: 1 DF, BID

REACTIONS (17)
  - ABDOMINAL DISCOMFORT [None]
  - ABDOMINAL PAIN UPPER [None]
  - CONDITION AGGRAVATED [None]
  - CONSTIPATION [None]
  - COUGH [None]
  - DRY THROAT [None]
  - ERUCTATION [None]
  - FATIGUE [None]
  - FLATULENCE [None]
  - HYPERHIDROSIS [None]
  - MUSCULOSKELETAL DISCOMFORT [None]
  - MYALGIA [None]
  - NAUSEA [None]
  - OEDEMA [None]
  - OLIGURIA [None]
  - UPPER RESPIRATORY TRACT CONGESTION [None]
  - WEIGHT INCREASED [None]
